FAERS Safety Report 6272152-2 (Version None)
Quarter: 2009Q3

REPORT INFORMATION
  Report Type: 
  Country: None (occurrence: None)
  Receive Date: 20090713
  Receipt Date: 20090313
  Transmission Date: 20100115
  Serious: No
  Sender: FDA-Public Use
  Company Number: 2009BM000064

PATIENT
  Age: 11 Year
  Sex: Female

DRUGS (1)
  1. KUVAN [Suspect]
     Indication: PHENYLKETONURIA
     Dosage: 1000 MG;QD;PO
     Route: 048
     Dates: start: 20090308

REACTIONS (3)
  - DIZZINESS [None]
  - HEADACHE [None]
  - RASH [None]
